FAERS Safety Report 8067856-5 (Version None)
Quarter: 2012Q1

REPORT INFORMATION
  Report Type: 
  Country: None (occurrence: None)
  Receive Date: 20120124
  Receipt Date: 20120119
  Transmission Date: 20120608
  Serious: Yes (Death)
  Sender: FDA-Public Use
  Company Number: US-GILEAD-2012-0049502

PATIENT
  Age: 84 Year
  Sex: Female

DRUGS (14)
  1. LETAIRIS [Suspect]
     Indication: PULMONARY HYPERTENSION
     Dosage: 5 MG, UNK
     Route: 048
     Dates: start: 20111223, end: 20120103
  2. COMPAZINE SPANSULE [Concomitant]
  3. ONDANSETRON [Concomitant]
  4. AGGRENOX [Concomitant]
  5. LASIX [Concomitant]
  6. INDERAL [Concomitant]
  7. ATIVAN [Concomitant]
  8. LEVOTHROID [Concomitant]
  9. LETAIRIS [Suspect]
     Indication: SYSTEMIC SCLEROSIS
  10. MEVACOR [Concomitant]
  11. ATROPINE [Concomitant]
  12. PREDNISONE [Concomitant]
  13. DURAGESIC-100 [Concomitant]
  14. MORPHINE [Concomitant]

REACTIONS (2)
  - DEATH [None]
  - MALAISE [None]
